FAERS Safety Report 5659218-2 (Version None)
Quarter: 2008Q1

REPORT INFORMATION
  Report Type: 
  Country: None (occurrence: None)
  Receive Date: 20080311
  Receipt Date: 20070606
  Transmission Date: 20080703
  Serious: No
  Sender: FDA-Public Use
  Company Number: US-BAYER-200711813BCC

PATIENT
  Age: 52 Year
  Sex: Female
  Weight: 78 kg

DRUGS (5)
  1. ALEVE [Suspect]
     Indication: PAIN IN EXTREMITY
     Dosage: TOTAL DAILY DOSE: 440 MG  UNIT DOSE: 220 MG
     Route: 048
     Dates: start: 20070604
  2. ALEVE [Suspect]
     Dosage: TOTAL DAILY DOSE: 440 MG  UNIT DOSE: 220 MG
     Route: 048
     Dates: start: 20070605
  3. CELEBREX [Concomitant]
  4. NEXIUM [Concomitant]
  5. HORMONE MEDICATION [Concomitant]

REACTIONS (1)
  - WEIGHT INCREASED [None]
